FAERS Safety Report 12612255 (Version 3)
Quarter: 2016Q4

REPORT INFORMATION
  Report Type: Report from Study
  Country: BR (occurrence: BR)
  Receive Date: 20160801
  Receipt Date: 20161123
  Transmission Date: 20170207
  Serious: Yes (Hospitalization, Other)
  Sender: FDA-Public Use
  Company Number: PHHY2016BR104997

PATIENT
  Age: 73 Year
  Sex: Female
  Weight: 73 kg

DRUGS (9)
  1. CATAFLAM [Suspect]
     Active Substance: DICLOFENAC POTASSIUM
     Indication: PRODUCT USED FOR UNKNOWN INDICATION
     Route: 065
  2. FORADIL [Suspect]
     Active Substance: FORMOTEROL FUMARATE
     Indication: DYSPNOEA
     Dosage: 1 DF, TID (AT MORNING, AT LUNCH AND AT NIGHT) (DUE TO DRY WEATHER)
     Route: 055
  3. VOLTAREN [Suspect]
     Active Substance: DICLOFENAC SODIUM
     Indication: PRODUCT USED FOR UNKNOWN INDICATION
     Route: 065
  4. FORADIL [Suspect]
     Active Substance: FORMOTEROL FUMARATE
     Indication: EMPHYSEMA
     Dosage: 1 DF, BID (IN THE MORNING AND AT NIGHT)
     Route: 055
  5. MORPHINE [Concomitant]
     Active Substance: MORPHINE
     Indication: PRODUCT USED FOR UNKNOWN INDICATION
     Route: 065
  6. BUDESONIDA [Concomitant]
     Indication: PRODUCT USED FOR UNKNOWN INDICATION
     Dosage: 400 MG, UNK
     Route: 065
  7. TRAMADOL. [Concomitant]
     Active Substance: TRAMADOL
     Indication: PRODUCT USED FOR UNKNOWN INDICATION
     Route: 065
  8. ALENIA//ESOMEPRAZOLE MAGNESIUM [Concomitant]
     Active Substance: ESOMEPRAZOLE MAGNESIUM
     Indication: PRODUCT USED FOR UNKNOWN INDICATION
     Dosage: 12 UG, BID
     Route: 065
  9. FLUIR [Suspect]
     Active Substance: FORMOTEROL FUMARATE
     Indication: EMPHYSEMA
     Dosage: USES MORE AT NIGHT
     Route: 065

REACTIONS (23)
  - Faeces hard [Recovered/Resolved]
  - Drug dependence [Unknown]
  - Abdominal hernia [Not Recovered/Not Resolved]
  - Feeling cold [Recovered/Resolved]
  - Dyspnoea [Unknown]
  - Malaise [Unknown]
  - Emphysema [Not Recovered/Not Resolved]
  - Limb discomfort [Unknown]
  - Asphyxia [Unknown]
  - Haemorrhage [Unknown]
  - Fatigue [Not Recovered/Not Resolved]
  - Gastrointestinal carcinoma [Recovered/Resolved]
  - Fear [Not Recovered/Not Resolved]
  - Feeling abnormal [Unknown]
  - Cough [Not Recovered/Not Resolved]
  - Pain [Recovering/Resolving]
  - Expired product administered [Unknown]
  - Back pain [Recovered/Resolved]
  - Gait disturbance [Unknown]
  - Wrong technique in product usage process [Unknown]
  - Faecaloma [Unknown]
  - Product use issue [Unknown]
  - Paraesthesia [Not Recovered/Not Resolved]

NARRATIVE: CASE EVENT DATE: 201502
